FAERS Safety Report 6590168-3 (Version None)
Quarter: 2010Q1

REPORT INFORMATION
  Report Type: 
  Country: None (occurrence: None)
  Receive Date: 20100219
  Receipt Date: 20100212
  Transmission Date: 20100710
  Serious: Yes (Death, Hospitalization)
  Sender: FDA-Public Use
  Company Number: DE-BRISTOL-MYERS SQUIBB COMPANY-14928386

PATIENT
  Age: 32 Year
  Sex: Male

DRUGS (2)
  1. SPRYCEL [Suspect]
     Indication: CHRONIC MYELOID LEUKAEMIA
     Dosage: TAKEN IN AUG,OCT
     Dates: start: 20090413
  2. HYDROXYCARBAMIDE [Suspect]
     Dosage: TAKEN IN SEP,NOV DOSE REDUCED FROM 1-2 TABS/DAY TO 500 MG EVERY 3-4 DAYS
     Dates: start: 20090316

REACTIONS (4)
  - MULTI-ORGAN FAILURE [None]
  - PANCYTOPENIA [None]
  - PNEUMONIA [None]
  - SEPSIS [None]
